FAERS Safety Report 8966512 (Version 2)
Quarter: 2013Q1

REPORT INFORMATION
  Report Type: Spontaneous
  Country: None (occurrence: US)
  Receive Date: 20121214
  Receipt Date: 20130109
  Transmission Date: 20140127
  Serious: Yes (Other)
  Sender: FDA-Public Use
  Company Number: -DX529-2012DX000261

PATIENT
  Sex: 0

DRUGS (1)
  1. KALBITOR [Suspect]
     Indication: HEREDITARY ANGIOEDEMA

REACTIONS (1)
  - Hypersensitivity [Unknown]
